FAERS Safety Report 16225162 (Version 1)
Quarter: 2019Q2

REPORT INFORMATION
  Report Type: Spontaneous
  Country: US (occurrence: US)
  Receive Date: 20190422
  Receipt Date: 20190422
  Transmission Date: 20190711
  Serious: Yes (Other)
  Sender: FDA-Public Use
  Company Number: US-ENDO PHARMACEUTICALS INC-2019-103973

PATIENT
  Age: 65 Year
  Sex: Male

DRUGS (1)
  1. MELPHALAN HYDROCHLORIDE. [Suspect]
     Active Substance: MELPHALAN HYDROCHLORIDE
     Indication: PLASMA CELL MYELOMA
     Dosage: 200 MG/M2, UNKNOWN
     Route: 065

REACTIONS (1)
  - Atrial fibrillation [Unknown]
